FAERS Safety Report 21973096 (Version 1)
Quarter: 2023Q1

REPORT INFORMATION
  Report Type: Spontaneous
  Country: US (occurrence: None)
  Receive Date: 20230207
  Receipt Date: 20230207
  Transmission Date: 20230418
  Serious: Yes (Other)
  Sender: FDA-Public Use
  Company Number: None

PATIENT
  Sex: Male

DRUGS (1)
  1. STELARA [Suspect]
     Active Substance: USTEKINUMAB
     Indication: Psoriasis
     Dosage: 45 MG/0.5ML SUBCUTANEOUS??INJECT 45MG UNDER THE SKIN (SUBCUTANEOUS INJECTION) EVERY 12 WEEKS?
     Route: 058
     Dates: start: 20190731

REACTIONS (1)
  - Surgery [None]
